FAERS Safety Report 10426192 (Version 2)
Quarter: 2014Q4

REPORT INFORMATION
  Report Type: Report from Study
  Country: NL (occurrence: NL)
  Receive Date: 20140903
  Receipt Date: 20141103
  Transmission Date: 20150528
  Serious: Yes (Death, Other)
  Sender: FDA-Public Use
  Company Number: NL-AMGEN-NLDSP2014066895

PATIENT
  Age: 60 Year
  Sex: Male

DRUGS (1)
  1. ARANESP [Suspect]
     Active Substance: DARBEPOETIN ALFA
     Indication: PRODUCT USED FOR UNKNOWN INDICATION
     Dosage: 500 MUG, Q3WK
     Route: 058
     Dates: start: 20140813, end: 20141002

REACTIONS (2)
  - Transfusion [Unknown]
  - Death [Fatal]

NARRATIVE: CASE EVENT DATE: 20141002
